FAERS Safety Report 20040587 (Version 1)
Quarter: 2021Q4

REPORT INFORMATION
  Report Type: Spontaneous
  Country: US (occurrence: None)
  Receive Date: 20211104
  Receipt Date: 20211104
  Transmission Date: 20220303
  Serious: Yes (Hospitalization, Other)
  Sender: FDA-Public Use
  Company Number: None

PATIENT
  Age: 50 Year
  Sex: Female
  Weight: 56.7 kg

DRUGS (10)
  1. LYRICA [Suspect]
     Active Substance: PREGABALIN
     Indication: Fibromyalgia
     Dates: start: 201007, end: 20120425
  2. Phenibarbital [Concomitant]
  3. PROZAC [Concomitant]
     Active Substance: FLUOXETINE HYDROCHLORIDE
  4. Dizaphen [Concomitant]
  5. Glercriel [Concomitant]
  6. Lidocone [Concomitant]
  7. Avarstan [Concomitant]
  8. Vitmins [Concomitant]
  9. CRANBERRY [Concomitant]
     Active Substance: CRANBERRY
  10. Zinus [Concomitant]

REACTIONS (7)
  - Ankle fracture [None]
  - Gait disturbance [None]
  - Neuralgia [None]
  - Urinary incontinence [None]
  - Dysgraphia [None]
  - Loss of personal independence in daily activities [None]
  - Ligament disorder [None]

NARRATIVE: CASE EVENT DATE: 20200407
